FAERS Safety Report 15858977 (Version 1)
Quarter: 2019Q1

REPORT INFORMATION
  Report Type: Report from Study
  Country: US (occurrence: US)
  Receive Date: 20190123
  Receipt Date: 20190123
  Transmission Date: 20190417
  Serious: Yes (Other)
  Sender: FDA-Public Use
  Company Number: US-SAKK-2019SA013947AA

PATIENT
  Age: 48 Year
  Sex: Female

DRUGS (1)
  1. INSULIN GLARGINE [Suspect]
     Active Substance: INSULIN GLARGINE
     Indication: TYPE 1 DIABETES MELLITUS
     Dosage: 6 U, HS
     Route: 058

REACTIONS (7)
  - Hypertension [Recovered/Resolved]
  - Visual impairment [Recovered/Resolved]
  - Glaucoma [Not Recovered/Not Resolved]
  - Blindness [Recovered/Resolved]
  - Surgery [Unknown]
  - Vision blurred [Recovered/Resolved]
  - Dialysis [Unknown]

NARRATIVE: CASE EVENT DATE: 2012
